FAERS Safety Report 12989669 (Version 3)
Quarter: 2019Q1

REPORT INFORMATION
  Report Type: Spontaneous
  Country: FR (occurrence: FR)
  Receive Date: 20161201
  Receipt Date: 20190131
  Transmission Date: 20190417
  Serious: Yes (Death)
  Sender: FDA-Public Use
  Company Number: FR-ROCHE-1860894

PATIENT
  Age: 13 Year
  Sex: Female

DRUGS (2)
  1. NUTROPIN [Suspect]
     Active Substance: SOMATROPIN
     Indication: GROWTH FAILURE
     Dosage: MAXIMUM DOSE OF 0.35 MG/KG PER WEEK
     Route: 065
  2. ETOPOSIDE. [Suspect]
     Active Substance: ETOPOSIDE
     Indication: NEUROBLASTOMA
     Dosage: SINGLE CYCLE
     Route: 065

REACTIONS (3)
  - Intentional product use issue [Fatal]
  - Ewing-like sarcoma [Fatal]
  - Off label use [Fatal]
